FAERS Safety Report 10792892 (Version 1)
Quarter: 2015Q1

REPORT INFORMATION
  Report Type: Spontaneous
  Country: US (occurrence: None)
  Receive Date: 20150211
  Receipt Date: 20150211
  Transmission Date: 20150721
  Serious: Yes (Hospitalization, Other)
  Sender: FDA-Public Use
  Company Number: 201501170

PATIENT
  Sex: Male

DRUGS (2)
  1. TESTOPEL [Suspect]
     Active Substance: TESTOSTERONE
     Indication: BLOOD TESTOSTERONE DECREASED
     Dosage: 5 PELLETS
     Route: 058
     Dates: start: 20081125, end: 20090324
  2. ANDROGEL [Suspect]
     Active Substance: TESTOSTERONE
     Indication: BLOOD TESTOSTERONE DECREASED
     Route: 062
     Dates: start: 200711, end: 200810

REACTIONS (4)
  - Polycythaemia [None]
  - Injury [None]
  - Economic problem [None]
  - Hypertension [None]

NARRATIVE: CASE EVENT DATE: 20090324
